FAERS Safety Report 24540015 (Version 1)
Quarter: 2024Q4

REPORT INFORMATION
  Report Type: Spontaneous
  Country: US (occurrence: None)
  Receive Date: 20241023
  Receipt Date: 20241023
  Transmission Date: 20250115
  Serious: No
  Sender: Public
  Company Number: None

PATIENT
  Sex: Male

DRUGS (2)
  1. COSENTYX [Suspect]
     Active Substance: SECUKINUMAB
     Indication: Psoriasis
     Dosage: OTHER FREQUENCY : WEEKS 0.1.2.3. AND 4);?INJECT L PEN UNDER THE SKIN ONCE WEEKLY FOR 5 WEEKS (WEEKS
     Route: 058
     Dates: start: 202409
  2. COSENTYX [Suspect]
     Active Substance: SECUKINUMAB
     Dosage: FREQUENCY : MONTHLY;?
     Route: 058

REACTIONS (5)
  - Drug ineffective [None]
  - Impaired quality of life [None]
  - Pain of skin [None]
  - Skin haemorrhage [None]
  - Psoriasis [None]
